FAERS Safety Report 10204119 (Version 1)
Quarter: 2014Q2

REPORT INFORMATION
  Report Type: Spontaneous
  Country: US (occurrence: None)
  Receive Date: 20140527
  Receipt Date: 20140527
  Transmission Date: 20141212
  Serious: Yes (Hospitalization)
  Sender: FDA-Public Use
  Company Number: None

PATIENT
  Age: 60 Year
  Sex: Male

DRUGS (9)
  1. AMIODARONE [Suspect]
     Dates: start: 20120426
  2. CARVEDILOL [Concomitant]
  3. ENALAPRIL [Concomitant]
  4. BUMETANIDE [Concomitant]
  5. ONDANSETRON [Concomitant]
  6. METHIMAZOLE [Concomitant]
  7. ASPIRIN [Concomitant]
  8. SPIRONOLACTONE [Concomitant]
  9. MEXILETINE [Concomitant]

REACTIONS (5)
  - Toxicity to various agents [None]
  - Cardiac failure congestive [None]
  - Ventricular tachycardia [None]
  - Urine iodine increased [None]
  - Thyroxine free increased [None]
